FAERS Safety Report 12075148 (Version 1)
Quarter: 2016Q1

REPORT INFORMATION
  Report Type: Spontaneous
  Country: NO (occurrence: NO)
  Receive Date: 20160212
  Receipt Date: 20160212
  Transmission Date: 20160526
  Serious: Yes (Other)
  Sender: FDA-Public Use
  Company Number: NO-009507513-1602NOR005195

PATIENT
  Sex: Female

DRUGS (1)
  1. OVESTERIN [Suspect]
     Active Substance: ESTRIOL
     Indication: HORMONE THERAPY
     Route: 048

REACTIONS (1)
  - Breast cancer [Unknown]
